FAERS Safety Report 7532935-5 (Version None)
Quarter: 2011Q2

REPORT INFORMATION
  Report Type: 
  Country: None (occurrence: None)
  Receive Date: 20110607
  Receipt Date: 20110607
  Transmission Date: 20111010
  Serious: Yes (Hospitalization)
  Sender: FDA-Public Use
  Company Number: None

PATIENT
  Age: 29 Year
  Sex: Female
  Weight: 90.7194 kg

DRUGS (1)
  1. NEURONTIN [Suspect]
     Indication: SCHIZOPHRENIA
     Dates: start: 20110515, end: 20110601

REACTIONS (2)
  - MALAISE [None]
  - DRUG HYPERSENSITIVITY [None]
